FAERS Safety Report 21918527 (Version 1)
Quarter: 2023Q1

REPORT INFORMATION
  Report Type: Spontaneous
  Country: FR (occurrence: FR)
  Receive Date: 20230127
  Receipt Date: 20230127
  Transmission Date: 20230417
  Serious: Yes (Life-Threatening, Hospitalization, Other)
  Sender: FDA-Public Use
  Company Number: FR-MACLEODS PHARMACEUTICALS US LTD-MAC2023039443

PATIENT

DRUGS (5)
  1. OLANZAPINE [Suspect]
     Active Substance: OLANZAPINE
     Indication: Product used for unknown indication
     Dosage: 20 MILLIGRAM, QD (IN THE EVENING)
     Route: 065
  2. ACETAMINOPHEN [Suspect]
     Active Substance: ACETAMINOPHEN
     Indication: Product used for unknown indication
     Dosage: 138 DOSAGE FORM, SINGLE TOTAL, (STRENGTH: 1 G)
     Route: 048
  3. FLUOXETINE [Suspect]
     Active Substance: FLUOXETINE HYDROCHLORIDE
     Indication: Product used for unknown indication
     Dosage: 40 MILLIGRAM, QD (20 MG IN THE MORNING AND 20 MG AT NOON)
     Route: 065
  4. BROMAZEPAM [Suspect]
     Active Substance: BROMAZEPAM
     Indication: Product used for unknown indication
     Dosage: 6 MILLIGRAM, QD (IN THE EVENING)
     Route: 065
  5. BROMAZEPAM [Suspect]
     Active Substance: BROMAZEPAM
     Dosage: 3 MILLIGRAM, QID
     Route: 065

REACTIONS (7)
  - Renal failure [Recovering/Resolving]
  - Toxicity to various agents [Recovered/Resolved]
  - Bezoar [Recovered/Resolved]
  - Renal tubular necrosis [Recovering/Resolving]
  - Metabolic acidosis [Recovering/Resolving]
  - Hepatic failure [Recovering/Resolving]
  - Intentional overdose [Recovered/Resolved]
